FAERS Safety Report 7015675-0 (Version None)
Quarter: 2010Q3

REPORT INFORMATION
  Report Type: 
  Country: None (occurrence: None)
  Receive Date: 20100927
  Receipt Date: 20100915
  Transmission Date: 20110219
  Serious: Yes (Hospitalization)
  Sender: FDA-Public Use
  Company Number: BR-MEDIMMUNE-MEDI-0011529

PATIENT
  Sex: Male
  Weight: 4.72 kg

DRUGS (6)
  1. SYNAGIS [Suspect]
     Route: 030
     Dates: start: 20100601, end: 20100601
  2. SYNAGIS [Suspect]
     Indication: BRONCHOPULMONARY DYSPLASIA
  3. DOMPERIDONE [Concomitant]
     Route: 048
     Dates: start: 20100822
  4. HYDROCHLOROTHIAZIDE [Concomitant]
     Route: 048
     Dates: start: 20100822
  5. SPIRONOLACTONE [Concomitant]
     Route: 048
     Dates: start: 20100822
  6. RANITIDINE [Concomitant]
     Route: 048
     Dates: start: 20100822

REACTIONS (2)
  - PNEUMONIA [None]
  - WHEEZING [None]
